FAERS Safety Report 8895840 (Version 1)
Quarter: 2012Q4

REPORT INFORMATION
  Report Type: 
  Country: ES (occurrence: ES)
  Receive Date: 20121108
  Receipt Date: 20121108
  Transmission Date: 20130627
  Serious: Yes (Life-Threatening, Hospitalization, Other)
  Sender: FDA-Public Use
  Company Number: PHHY2012ES102200

PATIENT
  Age: 77 Year
  Sex: Male

DRUGS (6)
  1. SINTROM [Suspect]
     Indication: ATRIAL FIBRILLATION
     Dosage: 4 mg
     Route: 048
     Dates: end: 20111205
  2. IBUPROFEN [Interacting]
     Dosage: 1.2gr/8h
     Dates: start: 20111125
  3. AMLODIPINE [Concomitant]
  4. ENALAPRIL [Concomitant]
  5. AMOXYCILLIN [Concomitant]
  6. RENVELA [Concomitant]

REACTIONS (9)
  - Gastrointestinal haemorrhage [Recovered/Resolved]
  - Haematochezia [Unknown]
  - Haematocrit decreased [Unknown]
  - Thrombosis [Unknown]
  - Diverticulum intestinal [Unknown]
  - Polyp [Unknown]
  - Atrial fibrillation [Unknown]
  - Drug interaction [Unknown]
  - Blood pressure increased [Unknown]
